FAERS Safety Report 10736109 (Version 1)
Quarter: 2015Q1

REPORT INFORMATION
  Report Type: Spontaneous
  Country: US (occurrence: None)
  Receive Date: 20150122
  Receipt Date: 20150122
  Transmission Date: 20150721
  Serious: Yes (Life-Threatening)
  Sender: FDA-Public Use
  Company Number: None

PATIENT
  Age: 14 Year
  Sex: Female
  Weight: 63.5 kg

DRUGS (2)
  1. PAXIL [Suspect]
     Active Substance: PAROXETINE HYDROCHLORIDE
     Indication: ANXIETY
     Dates: start: 20130102, end: 20130109
  2. PAXIL [Suspect]
     Active Substance: PAROXETINE HYDROCHLORIDE
     Indication: AUTONOMIC NERVOUS SYSTEM IMBALANCE
     Dates: start: 20130102, end: 20130109

REACTIONS (15)
  - Drug ineffective [None]
  - Pyrexia [None]
  - Feeling abnormal [None]
  - Urticaria [None]
  - Arthropathy [None]
  - Seizure [None]
  - Muscle rupture [None]
  - Swelling face [None]
  - Vomiting [None]
  - Abasia [None]
  - Pain [None]
  - Muscle spasms [None]
  - Hypokinesia [None]
  - Myalgia [None]
  - Skin burning sensation [None]

NARRATIVE: CASE EVENT DATE: 20150103
